FAERS Safety Report 9684765 (Version 1)
Quarter: 2013Q4

REPORT INFORMATION
  Report Type: Report from Study
  Country: US (occurrence: US)
  Receive Date: 20131112
  Receipt Date: 20131112
  Transmission Date: 20140711
  Serious: Yes (Hospitalization)
  Sender: FDA-Public Use
  Company Number: US-ROCHE-1302482

PATIENT
  Sex: Female

DRUGS (10)
  1. XOLAIR [Suspect]
     Indication: ASTHMA
     Route: 065
     Dates: start: 20110622
  2. FORADIL [Concomitant]
     Route: 055
     Dates: start: 2005
  3. ASMANEX [Concomitant]
     Route: 055
     Dates: start: 2006
  4. ASMANEX [Concomitant]
     Dosage: 1 SPRAY
     Route: 045
     Dates: start: 2011
  5. ALBUTEROL INHALER [Concomitant]
     Route: 055
     Dates: start: 2004
  6. SINGULAIR [Concomitant]
     Route: 065
     Dates: start: 2004
  7. ALBUTEROL NEBULIZER [Concomitant]
     Dosage: 1UD
     Route: 055
     Dates: start: 2004
  8. DILTIAZEM [Concomitant]
     Route: 065
     Dates: start: 2010
  9. DALIRESP [Concomitant]
     Route: 065
     Dates: start: 2012
  10. COZAAR [Concomitant]
     Route: 065
     Dates: start: 2012

REACTIONS (2)
  - Asthma [Unknown]
  - Influenza [Unknown]
